FAERS Safety Report 8843216 (Version 1)
Quarter: 2012Q4

REPORT INFORMATION
  Report Type: Report from Study
  Country: US (occurrence: US)
  Receive Date: 20121016
  Receipt Date: 20121016
  Transmission Date: 20130627
  Serious: Yes (Other)
  Sender: FDA-Public Use
  Company Number: US-ABBOTT-12P-163-0956903-00

PATIENT
  Age: 48 Year
  Sex: Female

DRUGS (16)
  1. HUMIRA 40 MG/0.8 ML PEN [Suspect]
     Indication: INFLAMMATORY BOWEL DISEASE
     Dates: start: 20111103
  2. HYDROXYZINE [Concomitant]
     Indication: BLADDER DISORDER
  3. AMITRIPTYLINE [Concomitant]
     Indication: BLADDER DISORDER
  4. HEPARIN [Concomitant]
     Indication: BLADDER DISORDER
     Dosage: instilled via catheter TID
  5. SODIUM BICARBONATE [Concomitant]
     Indication: BLADDER DISORDER
     Dosage: instilled via catheter TID
  6. LIDOCAINE [Concomitant]
     Indication: BLADDER DISORDER
     Dosage: instilled via catheter TID
  7. TYLENOL [Concomitant]
     Indication: PAIN
  8. TRAMADOL [Concomitant]
     Indication: PAIN
  9. SULFASALAZINE [Concomitant]
     Indication: PRODUCT USED FOR UNKNOWN INDICATION
  10. FOLIC ACID [Concomitant]
     Indication: PRODUCT USED FOR UNKNOWN INDICATION
  11. ELMIRON [Concomitant]
     Indication: PRODUCT USED FOR UNKNOWN INDICATION
  12. LIOTHYRONINE [Concomitant]
     Indication: PRODUCT USED FOR UNKNOWN INDICATION
  13. SYNTHROID [Concomitant]
     Indication: PRODUCT USED FOR UNKNOWN INDICATION
  14. SYNTHROID [Concomitant]
  15. PYRIDIUM [Concomitant]
     Indication: PRODUCT USED FOR UNKNOWN INDICATION
  16. PYRIDIUM [Concomitant]

REACTIONS (22)
  - Kidney infection [Unknown]
  - Injection site pain [Not Recovered/Not Resolved]
  - Injection site pain [Recovering/Resolving]
  - Respiratory tract infection [Unknown]
  - Chest pain [Unknown]
  - Heart rate increased [Unknown]
  - Urinary tract infection [Unknown]
  - Urinary tract infection [Unknown]
  - Device malfunction [Unknown]
  - Inflammatory bowel disease [Unknown]
  - Drug ineffective [Unknown]
  - Drug dose omission [Unknown]
  - Arthralgia [Unknown]
  - Bladder pain [Unknown]
  - Urethral pain [Unknown]
  - Diarrhoea [Unknown]
  - Dyskinesia [Unknown]
  - Injection site vesicles [Unknown]
  - Injection site haemorrhage [Unknown]
  - Injection site vesicles [Unknown]
  - Injection site haemorrhage [Unknown]
  - Immunodeficiency common variable [Unknown]
